FAERS Safety Report 4561313-6 (Version None)
Quarter: 2005Q1

REPORT INFORMATION
  Report Type: 
  Country: None (occurrence: None)
  Receive Date: 20050121
  Receipt Date: 20041228
  Transmission Date: 20050727
  Serious: Yes (Disabling)
  Sender: FDA-Public Use
  Company Number: FI 2005 0001

PATIENT
  Age: 39 Year
  Sex: Female

DRUGS (1)
  1. GADOTERIC ACID [Suspect]
     Indication: NUCLEAR MAGNETIC RESONANCE IMAGING

REACTIONS (5)
  - DYSGEUSIA [None]
  - ECZEMA [None]
  - NAUSEA [None]
  - VERTIGO [None]
  - VOMITING [None]
